FAERS Safety Report 6381252-8 (Version None)
Quarter: 2009Q3

REPORT INFORMATION
  Report Type: 
  Country: None (occurrence: None)
  Receive Date: 20090923
  Receipt Date: 20090901
  Transmission Date: 20100115
  Serious: Yes (Hospitalization)
  Sender: FDA-Public Use
  Company Number: US-2009-00224

PATIENT
  Age: 12 Year
  Sex: Male
  Weight: 43 kg

DRUGS (1)
  1. CEFTRIAXONE [Suspect]

REACTIONS (6)
  - ASTHENIA [None]
  - FATIGUE [None]
  - HEPATITIS [None]
  - HEPATITIS B SURFACE ANTIGEN POSITIVE [None]
  - HYPERGLYCAEMIA [None]
  - REFUSAL OF TREATMENT BY PATIENT [None]
